FAERS Safety Report 6674543-4 (Version None)
Quarter: 2010Q2

REPORT INFORMATION
  Report Type: 
  Country: None (occurrence: None)
  Receive Date: 20100409
  Receipt Date: 20100329
  Transmission Date: 20101027
  Serious: Yes (Other)
  Sender: FDA-Public Use
  Company Number: PHHY2010JP16836

PATIENT
  Age: 5 Year
  Sex: Male

DRUGS (5)
  1. CYCLOSPORINE [Suspect]
     Indication: LANGERHANS' CELL HISTIOCYTOSIS
     Dosage: UNK
     Dates: start: 20080101
  2. DEXAMETHASONE [Concomitant]
     Indication: LANGERHANS' CELL HISTIOCYTOSIS
     Dosage: UNK
     Dates: start: 20080101
  3. TACROLIMUS [Concomitant]
     Indication: LANGERHANS' CELL HISTIOCYTOSIS
  4. NAPROXEN [Concomitant]
     Indication: LANGERHANS' CELL HISTIOCYTOSIS
  5. METHOTREXATE [Concomitant]
     Indication: LANGERHANS' CELL HISTIOCYTOSIS

REACTIONS (8)
  - BONE DISORDER [None]
  - BOVINE TUBERCULOSIS [None]
  - BRAIN MASS [None]
  - DEAFNESS [None]
  - EAR INFECTION [None]
  - ENCEPHALOPATHY [None]
  - LANGERHANS' CELL HISTIOCYTOSIS [None]
  - OTORRHOEA [None]
